FAERS Safety Report 17528139 (Version 5)
Quarter: 2025Q3

REPORT INFORMATION
  Report Type: Spontaneous
  Country: US (occurrence: US)
  Receive Date: 20200311
  Receipt Date: 20250812
  Transmission Date: 20251021
  Serious: Yes (Hospitalization, Other)
  Sender: VERTEX
  Company Number: US-VERTEX PHARMACEUTICALS-2020-001848

PATIENT
  Age: 19 Year
  Sex: Female

DRUGS (6)
  1. TRIKAFTA [Suspect]
     Active Substance: ELEXACAFTOR\IVACAFTOR\TEZACAFTOR
     Indication: Cystic fibrosis
     Dosage: 2 ORANGE TAB AM, 1 BLUE TAB PM, BID
     Route: 048
     Dates: start: 20191114, end: 202001
  2. TRIKAFTA [Suspect]
     Active Substance: ELEXACAFTOR\IVACAFTOR\TEZACAFTOR
     Route: 048
     Dates: start: 2020
  3. TRIKAFTA [Suspect]
     Active Substance: ELEXACAFTOR\IVACAFTOR\TEZACAFTOR
     Route: 048
     Dates: start: 20200224
  4. TRIKAFTA [Suspect]
     Active Substance: ELEXACAFTOR\IVACAFTOR\TEZACAFTOR
     Dosage: REDUCED DOSE - ONLY AM TABLETS
     Route: 048
     Dates: start: 2025, end: 2025
  5. PULMOZYME [Concomitant]
     Active Substance: DORNASE ALFA
  6. DIFLUCAN [Concomitant]
     Active Substance: FLUCONAZOLE

REACTIONS (16)
  - Acute kidney injury [Unknown]
  - Kidney infection [Unknown]
  - Ovarian cyst [Unknown]
  - Anuria [Unknown]
  - Inguinal hernia [Unknown]
  - Diabetic ketoacidosis [Unknown]
  - Renal function test abnormal [Unknown]
  - Vomiting [Unknown]
  - Dehydration [Unknown]
  - Hypervolaemia [Not Recovered/Not Resolved]
  - Pulmonary oedema [Not Recovered/Not Resolved]
  - Drug interaction [Unknown]
  - Fungal test positive [Unknown]
  - Asthenia [Unknown]
  - Loss of consciousness [Unknown]
  - Disorientation [Unknown]

NARRATIVE: CASE EVENT DATE: 20191201
